FAERS Safety Report 10195359 (Version 1)
Quarter: 2014Q2

REPORT INFORMATION
  Report Type: Spontaneous
  Country: US (occurrence: US)
  Receive Date: 20140526
  Receipt Date: 20140526
  Transmission Date: 20141212
  Serious: No
  Sender: FDA-Public Use
  Company Number: US-009507513-1405USA009111

PATIENT
  Age: 53 Year
  Sex: Male

DRUGS (1)
  1. PROVENTIL [Suspect]
     Dosage: 90 MICROGRAM, Q6H, AS NEEDED
     Route: 055
     Dates: start: 20140514

REACTIONS (3)
  - Drug ineffective [Unknown]
  - Product quality issue [Unknown]
  - Incorrect dosage administered [Unknown]
